FAERS Safety Report 4286091-X (Version None)
Quarter: 2004Q1

REPORT INFORMATION
  Report Type: 
  Country: None (occurrence: None)
  Receive Date: 20040203
  Receipt Date: 20040122
  Transmission Date: 20041129
  Serious: Yes (Hospitalization, Other)
  Sender: FDA-Public Use
  Company Number: HQWYE526022JAN04

PATIENT
  Age: 3 Year
  Sex: Male

DRUGS (2)
  1. CHILDREN'S ADVIL [Suspect]
     Indication: PYREXIA
     Dosage: 135 MG X 4/D (ALTERNATING WITH PARACETAMOL) ORAL
     Route: 048
     Dates: start: 20010223, end: 20010226
  2. ACETAMINOPHEN [Suspect]
     Indication: PYREXIA
     Dosage: 270 MG X 4/D (ALTERNATING WITH CHILDREN'S ADVIL)ORAL
     Route: 048
     Dates: start: 20010223

REACTIONS (3)
  - CELLULITIS [None]
  - FACE OEDEMA [None]
  - RASH GENERALISED [None]
